FAERS Safety Report 4533279-6 (Version None)
Quarter: 2004Q4

REPORT INFORMATION
  Report Type: 
  Country: None (occurrence: None)
  Receive Date: 20041107
  Receipt Date: 20040818
  Transmission Date: 20050328
  Serious: Yes (Other)
  Sender: FDA-Public Use
  Company Number: 800140

PATIENT
  Age: 33 Year
  Sex: Male
  Weight: 94.8 kg

DRUGS (12)
  1. DIANEAL [Suspect]
     Indication: PERITONEAL DIALYSIS
     Dosage: 15 L; QD; INTRAPERITONEAL
     Route: 033
     Dates: start: 20010326
  2. VENOFEN [Concomitant]
  3. EPOGEN [Concomitant]
  4. NEPHROCAPS [Concomitant]
  5. ASPIRIN C [Concomitant]
  6. ZOCOR [Concomitant]
  7. HUMALOG [Concomitant]
  8. PHOSLO [Concomitant]
  9. RENAGEL [Concomitant]
  10. K-DUR [Concomitant]
  11. ULTRALENTE INSULIN [Concomitant]
  12. HECTOROL [Concomitant]

REACTIONS (2)
  - PERITONITIS [None]
  - STREPTOCOCCAL INFECTION [None]
